FAERS Safety Report 9154907 (Version 1)
Quarter: 2013Q1

REPORT INFORMATION
  Report Type: Spontaneous
  Country: US (occurrence: US)
  Receive Date: 20130311
  Receipt Date: 20130311
  Transmission Date: 20140127
  Serious: No
  Sender: FDA-Public Use
  Company Number: US-ABBOTT-12P-163-1005509-00

PATIENT
  Age: 42 None
  Sex: Female

DRUGS (4)
  1. LUPRON DEPOT [Suspect]
     Indication: ENDOMETRIOSIS
     Dates: start: 20120809
  2. AYGESTIN [Concomitant]
     Indication: DRUG THERAPY
  3. METFORMIN [Concomitant]
     Indication: DIABETES MELLITUS
  4. XANAX [Concomitant]
     Indication: ANXIETY

REACTIONS (9)
  - Pain in extremity [Unknown]
  - Pain in extremity [Unknown]
  - Paraesthesia [Unknown]
  - Skin burning sensation [Unknown]
  - Paraesthesia [Unknown]
  - Skin burning sensation [Unknown]
  - Heart rate increased [Unknown]
  - Dizziness [Unknown]
  - Thyrotoxic crisis [Unknown]
